FAERS Safety Report 13941496 (Version 12)
Quarter: 2018Q4

REPORT INFORMATION
  Report Type: Spontaneous
  Country: JP (occurrence: JP)
  Receive Date: 20170906
  Receipt Date: 20181128
  Transmission Date: 20190204
  Serious: Yes (Death, Hospitalization, Other)
  Sender: FDA-Public Use
  Company Number: JP-009507513-1709JPN000213J

PATIENT
  Age: 52 Year
  Sex: Male
  Weight: 62 kg

DRUGS (1)
  1. KEYTRUDA [Suspect]
     Active Substance: PEMBROLIZUMAB
     Indication: LUNG ADENOCARCINOMA
     Dosage: 200 MG, Q3W
     Route: 041
     Dates: start: 20170420, end: 20170809

REACTIONS (3)
  - Malignant neoplasm progression [Unknown]
  - Drug effect incomplete [Unknown]
  - Metastases to meninges [Fatal]

NARRATIVE: CASE EVENT DATE: 20170825
